FAERS Safety Report 25712825 (Version 1)
Quarter: 2025Q3

REPORT INFORMATION
  Report Type: Spontaneous
  Country: US (occurrence: US)
  Receive Date: 20250821
  Receipt Date: 20250821
  Transmission Date: 20251021
  Serious: Yes (Disabling, Other)
  Sender: MERCK SHARP & DOHME LLC
  Company Number: US-009507513-2319341

PATIENT
  Sex: Male

DRUGS (1)
  1. KEYTRUDA [Suspect]
     Active Substance: PEMBROLIZUMAB
     Indication: Lung neoplasm malignant
     Route: 065
     Dates: start: 202106

REACTIONS (7)
  - Scleroderma [Unknown]
  - Abdominal distension [Unknown]
  - Insomnia [Unknown]
  - Headache [Unknown]
  - Unevaluable event [Unknown]
  - Gait inability [Unknown]
  - Renal disorder [Unknown]
